FAERS Safety Report 8329207-8 (Version None)
Quarter: 2012Q2

REPORT INFORMATION
  Report Type: 
  Country: None (occurrence: None)
  Receive Date: 20120502
  Receipt Date: 20120105
  Transmission Date: 20120825
  Serious: No
  Sender: FDA-Public Use
  Company Number: US-ASTRAZENECA-2012SE01371

PATIENT

DRUGS (3)
  1. FASLODEX [Suspect]
     Route: 030
     Dates: start: 20111123, end: 20111123
  2. FASLODEX [Suspect]
     Route: 030
     Dates: start: 20111111, end: 20111111
  3. PERCOCET [Concomitant]

REACTIONS (1)
  - TRANSAMINASES INCREASED [None]
